FAERS Safety Report 7350584-9 (Version None)
Quarter: 2011Q1

REPORT INFORMATION
  Report Type: 
  Country: None (occurrence: None)
  Receive Date: 20110314
  Receipt Date: 20110303
  Transmission Date: 20110831
  Serious: Yes (Hospitalization, Other)
  Sender: FDA-Public Use
  Company Number: US-MERCK-1008USA00570

PATIENT
  Age: 68 Year
  Sex: Female

DRUGS (2)
  1. ALENDRONATE SODIUM [Suspect]
     Indication: OSTEOPOROSIS
     Route: 048
     Dates: start: 20080101, end: 20090401
  2. FOSAMAX [Suspect]
     Indication: OSTEOPOROSIS
     Route: 048
     Dates: start: 20020101, end: 20080101

REACTIONS (15)
  - OSTEONECROSIS OF JAW [None]
  - SKIN LESION [None]
  - OSTEOMYELITIS [None]
  - TOOTH DISORDER [None]
  - ABSCESS [None]
  - IMPAIRED HEALING [None]
  - INFECTION [None]
  - EXOSTOSIS [None]
  - GINGIVAL DISORDER [None]
  - CARDIAC DISORDER [None]
  - DENTAL CARIES [None]
  - TOOTH INFECTION [None]
  - ATRIOVENTRICULAR BLOCK COMPLETE [None]
  - CYST [None]
  - EDENTULOUS [None]
